FAERS Safety Report 5997997-5 (Version None)
Quarter: 2008Q4

REPORT INFORMATION
  Report Type: 
  Country: None (occurrence: None)
  Receive Date: 20081211
  Receipt Date: 20060905
  Transmission Date: 20090506
  Serious: Yes (Death)
  Sender: FDA-Public Use
  Company Number: 0610021

PATIENT
  Sex: Male

DRUGS (1)
  1. ORFADIN [Suspect]
     Dosage: PATIENT RECEIVED ONE DOSE, ORAL
     Route: 048
     Dates: start: 20060817, end: 20060817

REACTIONS (1)
  - HEPATIC FAILURE [None]
